FAERS Safety Report 4919140-3 (Version None)
Quarter: 2006Q1

REPORT INFORMATION
  Report Type: 
  Country: None (occurrence: None)
  Receive Date: 20060222
  Receipt Date: 20060207
  Transmission Date: 20060701
  Serious: Yes (Disabling)
  Sender: FDA-Public Use
  Company Number: SK-SANOFI-SYNTHELABO-A01200600962

PATIENT
  Age: 50 Year
  Sex: Male

DRUGS (4)
  1. ELOXATIN [Suspect]
     Indication: COLORECTAL CANCER METASTATIC
     Route: 042
     Dates: start: 20051101, end: 20051101
  2. FLUOROURACIL [Suspect]
     Route: 042
     Dates: start: 20051101, end: 20051101
  3. LEUCOVORIN CALCIUM [Suspect]
     Route: 042
     Dates: start: 20051101, end: 20051101
  4. DEXAMETHASONE SODIUM PHOSPHATE [Concomitant]
     Route: 065

REACTIONS (1)
  - DIABETES MELLITUS [None]
